FAERS Safety Report 6411822-X (Version None)
Quarter: 2009Q4

REPORT INFORMATION
  Report Type: 
  Country: None (occurrence: None)
  Receive Date: 20091023
  Receipt Date: 20091016
  Transmission Date: 20100525
  Serious: Yes (Hospitalization, Other)
  Sender: FDA-Public Use
  Company Number: SE-ASTRAZENECA-2009SE20774

PATIENT
  Age: 41 Year
  Sex: Male

DRUGS (6)
  1. ZOMIG [Suspect]
     Indication: HEADACHE
     Route: 048
  2. ZOMIG [Suspect]
     Route: 048
     Dates: start: 20090224, end: 20090224
  3. VOXRA [Suspect]
     Indication: DEPRESSION
     Route: 048
     Dates: start: 20090224, end: 20090224
  4. KESTINE [Concomitant]
     Route: 065
  5. TRADOLAN RETARD [Concomitant]
     Dates: start: 20090201
  6. ACETAMINOPHEN W/ CODEINE [Concomitant]
     Dosage: 500MG/30MG
     Route: 065

REACTIONS (2)
  - ACCIDENTAL OVERDOSE [None]
  - CONVULSION [None]
